FAERS Safety Report 7700310-6 (Version None)
Quarter: 2011Q3

REPORT INFORMATION
  Report Type: 
  Country: None (occurrence: None)
  Receive Date: 20110822
  Receipt Date: 20110809
  Transmission Date: 20111222
  Serious: Yes (Other)
  Sender: FDA-Public Use
  Company Number: PHHY2011VE73166

PATIENT
  Sex: Female

DRUGS (14)
  1. ZOLEDRONOC ACID [Suspect]
     Indication: OSTEOPOROSIS
     Dosage: 5 MG, UNK
     Route: 042
  2. BISOPROLOL FUMARATE [Concomitant]
     Dosage: UNK UKN, UNK
  3. AMBROCOL [Concomitant]
     Dosage: UNK UKN, UNK
  4. NORVASC [Concomitant]
     Dosage: UNK UKN, UNK
  5. LIOTRIX [Concomitant]
     Dosage: UNK UKN, UNK
  6. MEDROL [Concomitant]
     Dosage: UNK UKN, UNK
  7. EFFEXOR [Concomitant]
     Dosage: UNK UKN, UNK
  8. CALCIBON [Concomitant]
     Dosage: UNK UKN, UNK
  9. OLMESARTAN MEDOXOMIL [Concomitant]
     Dosage: UNK UKN, UNK
  10. AMIODARONE HCL [Concomitant]
     Dosage: UNK UKN, UNK
  11. UNASYN [Concomitant]
     Dosage: UNK UKN, UNK
  12. SISTERMAC [Concomitant]
     Dosage: UNK UKN, UNK
  13. TRIDIL [Concomitant]
     Dosage: UNK UKN, UNK
  14. NEXIUM [Concomitant]
     Dosage: UNK UKN, UNK

REACTIONS (1)
  - PNEUMONIA [None]
